FAERS Safety Report 17846712 (Version 1)
Quarter: 2020Q2

REPORT INFORMATION
  Report Type: Spontaneous
  Country: US (occurrence: US)
  Receive Date: 20200601
  Receipt Date: 20200601
  Transmission Date: 20200714
  Serious: Yes (Death)
  Sender: FDA-Public Use
  Company Number: None

PATIENT
  Age: 68 Year
  Sex: Male
  Weight: 76 kg

DRUGS (2)
  1. REMDESIVIR 5MG/ML CONCENTRATED SOLUTION [Suspect]
     Active Substance: REMDESIVIR
     Indication: COVID-19
     Dosage: ?          OTHER DOSE:200MG/40ML;?FREQUENCY: 1?
     Route: 042
     Dates: start: 20200521, end: 20200521
  2. CONVALESCENT PLASMA 213 ML [Concomitant]
     Dates: start: 20200513

REACTIONS (1)
  - COVID-19 [None]

NARRATIVE: CASE EVENT DATE: 20200524
